FAERS Safety Report 6875910-6 (Version None)
Quarter: 2010Q3

REPORT INFORMATION
  Report Type: 
  Country: None (occurrence: None)
  Receive Date: 20100727
  Receipt Date: 20070702
  Transmission Date: 20110219
  Serious: Yes (Hospitalization, Other)
  Sender: FDA-Public Use
  Company Number: US-PFIZER INC-2006097052

PATIENT
  Sex: Female
  Weight: 83.9 kg

DRUGS (4)
  1. CELEBREX [Suspect]
     Indication: NECK PAIN
     Route: 048
     Dates: start: 20000301
  2. CELEBREX [Suspect]
     Indication: BACK PAIN
  3. BEXTRA [Suspect]
     Route: 048
     Dates: start: 20000101, end: 20001201
  4. VIOXX [Suspect]
     Route: 048
     Dates: start: 20000101

REACTIONS (1)
  - MYOCARDIAL INFARCTION [None]
